FAERS Safety Report 6772664-9 (Version None)
Quarter: 2010Q2

REPORT INFORMATION
  Report Type: 
  Country: None (occurrence: None)
  Receive Date: 20100616
  Receipt Date: 20090430
  Transmission Date: 20101027
  Serious: No
  Sender: FDA-Public Use
  Company Number: US-ASTRAZENECA-2009UW10862

PATIENT
  Age: 8 Year
  Sex: Female
  Weight: 42.6 kg

DRUGS (1)
  1. PULMICORT RESPULES [Suspect]
     Indication: ASTHMA
     Dosage: .5 MILLIGRAMS DAILY
     Route: 055
     Dates: start: 20090420

REACTIONS (2)
  - PRURITUS [None]
  - RASH PAPULAR [None]
